FAERS Safety Report 4778886-0 (Version None)
Quarter: 2005Q3

REPORT INFORMATION
  Report Type: 
  Country: None (occurrence: None)
  Receive Date: 20050922
  Receipt Date: 20050913
  Transmission Date: 20060218
  Serious: Yes (Other)
  Sender: FDA-Public Use
  Company Number: 2005-08-1093

PATIENT
  Age: 67 Year
  Sex: Male
  Weight: 59.8748 kg

DRUGS (13)
  1. TEMODAR [Suspect]
     Indication: GLIOBLASTOMA MULTIFORME
     Dosage: 120 MG QD X42D ORAL
     Route: 048
     Dates: start: 20050608, end: 20050707
  2. RADIATION THERAPY [Concomitant]
  3. LESCOL [Concomitant]
  4. ATENOLOL [Concomitant]
  5. PROTONIX [Concomitant]
  6. LEXAPRO [Concomitant]
  7. DILANTIN [Concomitant]
  8. TYLENOL PM EXTRA STRENGTH (ACETAMINOPHEN/DIPHENHYDRAMINE) [Concomitant]
  9. DECADRON [Concomitant]
  10. MILK OF MAGNESIA TAB [Concomitant]
  11. LEVAQUIN [Concomitant]
  12. DIFLUCAN [Concomitant]
  13. MEGACE [Concomitant]

REACTIONS (6)
  - AGRANULOCYTOSIS [None]
  - ANAEMIA [None]
  - BONE MARROW DEPRESSION [None]
  - NEUTROPENIA [None]
  - THROMBOCYTOPENIA [None]
  - VIRAL INFECTION [None]
